FAERS Safety Report 13274493 (Version 1)
Quarter: 2017Q1

REPORT INFORMATION
  Report Type: Spontaneous
  Country: GB (occurrence: GB)
  Receive Date: 20170227
  Receipt Date: 20170227
  Transmission Date: 20170428
  Serious: Yes (Other)
  Sender: FDA-Public Use
  Company Number: PHHY2017GB024892

PATIENT
  Age: 59 Year
  Sex: Female
  Weight: 82.55 kg

DRUGS (1)
  1. GABAPENTIN. [Suspect]
     Active Substance: GABAPENTIN
     Indication: NEURALGIA
     Route: 048
     Dates: start: 20160920, end: 20160930

REACTIONS (3)
  - Amnesia [Recovered/Resolved]
  - Confusional state [Recovered/Resolved]
  - Coordination abnormal [Recovered/Resolved]

NARRATIVE: CASE EVENT DATE: 20160922
